FAERS Safety Report 9089240 (Version 1)
Quarter: 2013Q1

REPORT INFORMATION
  Report Type: Report from Study
  Country: US (occurrence: US)
  Receive Date: 20130131
  Receipt Date: 20130131
  Transmission Date: 20140127
  Serious: No
  Sender: FDA-Public Use
  Company Number: US-ABBOTT-12P-163-1004365-00

PATIENT
  Age: 57 Year
  Sex: Female

DRUGS (7)
  1. HUMIRA [Suspect]
     Indication: CROHN^S DISEASE
     Dosage: LOADING DOSE ONLY
     Route: 058
     Dates: start: 20121019, end: 20121019
  2. HUMIRA [Suspect]
     Route: 058
  3. ZANAFLEX [Concomitant]
     Indication: INSOMNIA
     Dosage: 25MG OR 30MG
  4. HYDROCHLORTHIAZID [Concomitant]
     Indication: BLOOD PRESSURE
  5. TOPRAL-XL [Concomitant]
     Indication: BLOOD PRESSURE
  6. VITAMIN D [Concomitant]
     Dosage: 50,000 IU/WEEK
  7. B12 [Concomitant]
     Route: 050

REACTIONS (4)
  - Feeling drunk [Recovered/Resolved]
  - Local swelling [Not Recovered/Not Resolved]
  - Joint swelling [Not Recovered/Not Resolved]
  - Fatigue [Not Recovered/Not Resolved]
